FAERS Safety Report 4926687-2 (Version None)
Quarter: 2006Q1

REPORT INFORMATION
  Report Type: 
  Country: None (occurrence: None)
  Receive Date: 20060228
  Receipt Date: 20050526
  Transmission Date: 20060701
  Serious: No
  Sender: FDA-Public Use
  Company Number: US-GLAXOSMITHKLINE-A0560276A

PATIENT
  Age: 45 Year
  Sex: Female
  Weight: 78 kg

DRUGS (4)
  1. LAMICTAL [Suspect]
     Dosage: 25MG PER DAY
     Route: 048
     Dates: start: 20050510, end: 20050518
  2. KLONOPIN [Concomitant]
     Dosage: 1MG THREE TIMES PER DAY
     Route: 048
  3. EPIPEN [Concomitant]
     Dosage: .3MG AS REQUIRED
     Route: 065
  4. FOLIC ACID [Concomitant]
     Dosage: 1MG PER DAY
     Route: 048
     Dates: start: 20050207

REACTIONS (13)
  - ANOREXIA [None]
  - CHILLS [None]
  - DIZZINESS [None]
  - DYSPNOEA [None]
  - FATIGUE [None]
  - FLUSHING [None]
  - HEADACHE [None]
  - ILL-DEFINED DISORDER [None]
  - LYMPHADENOPATHY [None]
  - NAUSEA [None]
  - NIGHT SWEATS [None]
  - PYREXIA [None]
  - RASH [None]
